FAERS Safety Report 7410159-X (Version None)
Quarter: 2011Q2

REPORT INFORMATION
  Report Type: 
  Country: None (occurrence: None)
  Receive Date: 20110412
  Receipt Date: 20110408
  Transmission Date: 20111010
  Serious: Yes (Hospitalization)
  Sender: FDA-Public Use
  Company Number: FR-PFIZER INC-2011074940

PATIENT
  Age: 76 Year
  Sex: Male
  Weight: 98 kg

DRUGS (1)
  1. ZYVOX [Suspect]
     Indication: OSTEITIS
     Dosage: 600 MG, 2X/DAY
     Route: 048
     Dates: start: 20110204, end: 20110215

REACTIONS (1)
  - RENAL FAILURE ACUTE [None]
